FAERS Safety Report 9174158 (Version 1)
Quarter: 2013Q1

REPORT INFORMATION
  Report Type: Spontaneous
  Country: US (occurrence: None)
  Receive Date: 20130315
  Receipt Date: 20130315
  Transmission Date: 20140127
  Serious: Yes (Hospitalization)
  Sender: FDA-Public Use
  Company Number: NSR_01057_2013

PATIENT
  Age: 16 Year
  Sex: Male
  Weight: 57.5 kg

DRUGS (4)
  1. METOCLOPRAMIDE [Suspect]
     Indication: IMPAIRED GASTRIC EMPTYING
     Dosage: (UNKNOWN UNTIL CONTINUING)
     Route: 048
  2. DEFERASIROX (UNKNOWN) [Concomitant]
  3. MORPHINE (UNKNOWN) [Concomitant]
  4. PANTOPRAZOLE (UNKNOWN) [Concomitant]

REACTIONS (8)
  - Dysarthria [None]
  - Hypoaesthesia [None]
  - Pyrexia [None]
  - Diarrhoea [None]
  - Vomiting [None]
  - Dehydration [None]
  - Anaemia [None]
  - Tardive dyskinesia [None]
